FAERS Safety Report 17199062 (Version 1)
Quarter: 2019Q4

REPORT INFORMATION
  Report Type: Spontaneous
  Country: CH (occurrence: CH)
  Receive Date: 20191225
  Receipt Date: 20191225
  Transmission Date: 20200122
  Serious: Yes (Other)
  Sender: FDA-Public Use
  Company Number: CH-BAUSCH-BL-2019-065980

PATIENT
  Age: 56 Year
  Sex: Female

DRUGS (23)
  1. METHOTREXATE. [Suspect]
     Active Substance: METHOTREXATE
     Route: 013
     Dates: start: 20190829, end: 20190830
  2. VISIPAQUE [Suspect]
     Active Substance: IODIXANOL
     Indication: ANAL CANCER RECURRENT
     Dosage: 270 G/ML, TOTAL
     Route: 013
     Dates: start: 20191003, end: 20191003
  3. VISIPAQUE [Suspect]
     Active Substance: IODIXANOL
     Dosage: DOSE RE-INTRODUCED
     Route: 013
  4. FLUOROURACIL. [Suspect]
     Active Substance: FLUOROURACIL
     Indication: ANAL CANCER RECURRENT
     Dosage: CYCLICAL, CURATIVE, CHEMORADIOTHERAPY, 2 CYCLES
     Route: 065
     Dates: start: 2017, end: 2017
  5. BLEOMYCIN SULFATE [Suspect]
     Active Substance: BLEOMYCIN SULFATE
     Dosage: DOSE RE-INTRODUCED
     Route: 042
  6. MITOMYCIN. [Suspect]
     Active Substance: MITOMYCIN
     Route: 013
     Dates: start: 20191003, end: 20191004
  7. FLUOROURACIL. [Suspect]
     Active Substance: FLUOROURACIL
     Dosage: DOSE RE-INTRODUCED
     Route: 013
  8. BLEOMYCIN SULFATE [Suspect]
     Active Substance: BLEOMYCIN SULFATE
     Indication: ANAL CANCER RECURRENT
     Dosage: 10 MG, TOTAL
     Route: 042
     Dates: start: 20190725, end: 20190725
  9. METHOTREXATE. [Suspect]
     Active Substance: METHOTREXATE
     Indication: ANAL CANCER RECURRENT
     Route: 013
     Dates: start: 20190725, end: 20190726
  10. FLUOROURACIL. [Suspect]
     Active Substance: FLUOROURACIL
     Route: 013
     Dates: start: 20190829, end: 20190830
  11. BLEOMYCIN SULFATE [Suspect]
     Active Substance: BLEOMYCIN SULFATE
     Indication: ANAL SQUAMOUS CELL CARCINOMA
     Route: 042
     Dates: start: 20190829, end: 20190829
  12. OXALIPLATIN. [Suspect]
     Active Substance: OXALIPLATIN
     Route: 013
     Dates: start: 20191003, end: 20191004
  13. MITOMYCIN. [Suspect]
     Active Substance: MITOMYCIN
     Indication: ANAL CANCER RECURRENT
     Route: 013
     Dates: start: 20190725, end: 20190726
  14. MITOMYCIN. [Suspect]
     Active Substance: MITOMYCIN
     Dosage: DOSE RE-INTRODUCED
     Route: 065
  15. FLUOROURACIL. [Suspect]
     Active Substance: FLUOROURACIL
     Indication: ANAL SQUAMOUS CELL CARCINOMA
     Route: 013
     Dates: start: 20190725, end: 20190726
  16. FLUOROURACIL. [Suspect]
     Active Substance: FLUOROURACIL
     Route: 013
     Dates: start: 20191003, end: 20191004
  17. OXALIPLATIN. [Suspect]
     Active Substance: OXALIPLATIN
     Dosage: DOSE RE-INTRODUCED
     Route: 013
  18. METHOTREXATE. [Suspect]
     Active Substance: METHOTREXATE
     Route: 013
     Dates: start: 20191003, end: 20191004
  19. METHOTREXATE. [Suspect]
     Active Substance: METHOTREXATE
     Dosage: DOSE RE-INTRODUCED
     Route: 013
  20. BLEOMYCIN SULFATE [Suspect]
     Active Substance: BLEOMYCIN SULFATE
     Route: 042
     Dates: start: 20191003, end: 20191003
  21. OXALIPLATIN. [Suspect]
     Active Substance: OXALIPLATIN
     Indication: ANAL CANCER RECURRENT
     Route: 013
     Dates: start: 20190725, end: 20190726
  22. OXALIPLATIN. [Suspect]
     Active Substance: OXALIPLATIN
     Route: 013
     Dates: start: 20190829, end: 20190830
  23. MITOMYCIN. [Suspect]
     Active Substance: MITOMYCIN
     Indication: ANAL SQUAMOUS CELL CARCINOMA
     Dosage: CYCLICAL, CURATIVE, CHEMOTHERAPY, 2 CYCLES
     Route: 065
     Dates: start: 2017, end: 2017

REACTIONS (4)
  - Livedo reticularis [Recovered/Resolved]
  - Necrosis [Unknown]
  - Livedo reticularis [Unknown]
  - Haemorrhage [Unknown]

NARRATIVE: CASE EVENT DATE: 20190829
